FAERS Safety Report 15315586 (Version 1)
Quarter: 2018Q3

REPORT INFORMATION
  Report Type: Spontaneous
  Country: US (occurrence: US)
  Receive Date: 20180824
  Receipt Date: 20180824
  Transmission Date: 20181010
  Serious: No
  Sender: FDA-Public Use
  Company Number: US-BAYER-2018-158059

PATIENT
  Age: 87 Year
  Sex: Female
  Weight: 76.96 kg

DRUGS (4)
  1. ALEVE [Suspect]
     Active Substance: NAPROXEN SODIUM
     Indication: PAIN
     Route: 048
     Dates: start: 20180819
  2. GABAPENTIN. [Concomitant]
     Active Substance: GABAPENTIN
  3. ATENOLOL. [Concomitant]
     Active Substance: ATENOLOL
  4. ST. JOSEPH ASPIRIN [Concomitant]

REACTIONS (2)
  - Restlessness [Unknown]
  - Insomnia [Unknown]

NARRATIVE: CASE EVENT DATE: 20180820
